FAERS Safety Report 8606337-4 (Version None)
Quarter: 2012Q3

REPORT INFORMATION
  Report Type: 
  Country: None (occurrence: None)
  Receive Date: 20120820
  Receipt Date: 20120816
  Transmission Date: 20120928
  Serious: Yes (Hospitalization)
  Sender: FDA-Public Use
  Company Number: CA-ROCHE-1103070

PATIENT
  Age: 35 Year
  Sex: Female

DRUGS (4)
  1. XELODA [Suspect]
     Indication: PRODUCT USED FOR UNKNOWN INDICATION
     Route: 065
  2. TYKERB [Suspect]
     Indication: PRODUCT USED FOR UNKNOWN INDICATION
     Route: 048
  3. LEVOFLOXACIN [Concomitant]
     Route: 065
  4. IMODIUM [Concomitant]

REACTIONS (6)
  - LOCALISED INFECTION [None]
  - DIARRHOEA [None]
  - DISEASE PROGRESSION [None]
  - NEOPLASM MALIGNANT [None]
  - PYREXIA [None]
  - WHITE BLOOD CELL COUNT DECREASED [None]
